FAERS Safety Report 5206275-3 (Version None)
Quarter: 2006Q4

REPORT INFORMATION
  Report Type: 
  Country: None (occurrence: None)
  Receive Date: 20061026
  Receipt Date: 20060912
  Transmission Date: 20070319
  Serious: Yes (Other)
  Sender: FDA-Public Use
  Company Number: 2006111240

PATIENT

DRUGS (3)
  1. LYRICA [Suspect]
  2. ETANERCEPT (ETANERCEPT) [Suspect]
  3. ALL OTHER THERAPEUTIC PRODUCTS (ALL OTHER THERAPEUTIC PRODUCTS) [Suspect]

REACTIONS (1)
  - PLATELET COUNT DECREASED [None]
